FAERS Safety Report 11272963 (Version 1)
Quarter: 2015Q3

REPORT INFORMATION
  Report Type: Spontaneous
  Country: US (occurrence: None)
  Receive Date: 20150714
  Receipt Date: 20150714
  Transmission Date: 20151125
  Serious: Yes (Disabling)
  Sender: FDA-Public Use
  Company Number: None

PATIENT
  Age: 39 Year
  Sex: Female
  Weight: 58.97 kg

DRUGS (5)
  1. VITAMIN E [Concomitant]
     Active Substance: .ALPHA.-TOCOPHEROL
  2. LEVOFLOXACIN 500 MG [Suspect]
     Active Substance: LEVOFLOXACIN
     Indication: URINARY TRACT INFECTION
     Route: 048
     Dates: start: 20150701, end: 20150707
  3. LEVOFLOXACIN 500 MG [Suspect]
     Active Substance: LEVOFLOXACIN
     Indication: EAR INFECTION
     Route: 048
     Dates: start: 20150701, end: 20150707
  4. MAGNISUM [Concomitant]
  5. VITAMIN C [Concomitant]
     Active Substance: ASCORBIC ACID

REACTIONS (13)
  - Tenderness [None]
  - Dizziness [None]
  - Migraine [None]
  - Chest pain [None]
  - Palpitations [None]
  - Pain [None]
  - Cystitis [None]
  - Abasia [None]
  - Burning sensation [None]
  - Muscular weakness [None]
  - Ear infection [None]
  - Arthralgia [None]
  - Disease recurrence [None]

NARRATIVE: CASE EVENT DATE: 20150701
